FAERS Safety Report 7067469-8 (Version None)
Quarter: 2010Q4

REPORT INFORMATION
  Report Type: 
  Country: None (occurrence: None)
  Receive Date: 20101028
  Receipt Date: 20101014
  Transmission Date: 20110411
  Serious: Yes (Other)
  Sender: FDA-Public Use
  Company Number: US-BAYER-201019351NA

PATIENT
  Age: 20 Year
  Sex: Female
  Weight: 63 kg

DRUGS (2)
  1. MIRENA [Suspect]
     Indication: CONTRACEPTION
     Dosage: FREQUENCY CONTINUOUS
     Route: 015
     Dates: start: 20100316, end: 20100331
  2. CYTOTEC [Concomitant]
     Route: 067
     Dates: start: 20100315

REACTIONS (6)
  - COITAL BLEEDING [None]
  - DEVICE DISLOCATION [None]
  - DEVICE EXPULSION [None]
  - DYSPAREUNIA [None]
  - MUSCLE SPASMS [None]
  - PROCEDURAL PAIN [None]
